FAERS Safety Report 14220770 (Version 1)
Quarter: 2017Q4

REPORT INFORMATION
  Report Type: Spontaneous
  Country: US (occurrence: US)
  Receive Date: 20171124
  Receipt Date: 20171124
  Transmission Date: 20180321
  Serious: Yes (Other)
  Sender: FDA-Public Use
  Company Number: US-TEVA-2017-US-827761

PATIENT
  Age: 71 Year
  Sex: Female
  Weight: 82.3 kg

DRUGS (1)
  1. PACLITAXEL. [Suspect]
     Active Substance: PACLITAXEL
     Route: 065

REACTIONS (5)
  - Chest discomfort [Unknown]
  - Feeling abnormal [Unknown]
  - Hypersensitivity [Unknown]
  - Vertigo [Recovered/Resolved]
  - Flushing [Unknown]

NARRATIVE: CASE EVENT DATE: 20171107
